FAERS Safety Report 17115451 (Version 1)
Quarter: 2019Q4

REPORT INFORMATION
  Report Type: Spontaneous
  Country: CA (occurrence: CA)
  Receive Date: 20191204
  Receipt Date: 20191204
  Transmission Date: 20200122
  Serious: Yes (Other)
  Sender: FDA-Public Use
  Company Number: None

PATIENT
  Age: 42 Year
  Sex: Female
  Weight: 42.75 kg

DRUGS (8)
  1. SYNTHROID [Concomitant]
     Active Substance: LEVOTHYROXINE SODIUM
  2. CIPROFLOXACIN. [Concomitant]
     Active Substance: CIPROFLOXACIN
  3. VITIMIN D [Concomitant]
  4. ADVIL [Concomitant]
     Active Substance: IBUPROFEN
  5. ACETAMINOPHEN. [Suspect]
     Active Substance: ACETAMINOPHEN
     Indication: PYREXIA
     Route: 048
     Dates: start: 20170108, end: 20170108
  6. VITIMIN C [Concomitant]
  7. CIPRALEX [Concomitant]
     Active Substance: ESCITALOPRAM OXALATE
  8. PPI DRUG [Concomitant]

REACTIONS (3)
  - Anaphylactic reaction [None]
  - Hypersensitivity [None]
  - Influenza [None]

NARRATIVE: CASE EVENT DATE: 20170108
